FAERS Safety Report 9522337 (Version 1)
Quarter: 2013Q3

REPORT INFORMATION
  Report Type: Report from Study
  Country: CA (occurrence: CA)
  Receive Date: 20130913
  Receipt Date: 20130913
  Transmission Date: 20140515
  Serious: Yes (Other)
  Sender: FDA-Public Use
  Company Number: CA-JNJFOC-20130903575

PATIENT
  Age: 52 Year
  Sex: Female
  Weight: 78.6 kg

DRUGS (4)
  1. REMICADE [Suspect]
     Indication: GLAUCOMA
     Route: 042
     Dates: start: 201002
  2. PREDNISONE [Concomitant]
     Route: 047
  3. DORZOLAMIDE [Concomitant]
     Route: 065
  4. TRAVATAN [Concomitant]
     Route: 065

REACTIONS (3)
  - Osteoporosis [Unknown]
  - Off label use [Unknown]
  - Influenza [Recovered/Resolved]
